FAERS Safety Report 24567099 (Version 1)
Quarter: 2024Q4

REPORT INFORMATION
  Report Type: Spontaneous
  Country: DE (occurrence: DE)
  Receive Date: 20241030
  Receipt Date: 20241030
  Transmission Date: 20250115
  Serious: Yes (Other)
  Sender: NOVARTIS
  Company Number: None

PATIENT
  Age: 46 Year
  Sex: Male
  Weight: 75 kg

DRUGS (2)
  1. ARTEMETHER\LUMEFANTRINE [Suspect]
     Active Substance: ARTEMETHER\LUMEFANTRINE
     Indication: Plasmodium falciparum infection
     Dosage: 8 DOSAGE FORM, QD (TAG 1: 80/480 MG (4 TABLETTEN), NACH 8 H 80/480 MG (4 TABLETTEN))
     Route: 048
     Dates: start: 20240929
  2. ARTEMETHER\LUMEFANTRINE [Suspect]
     Active Substance: ARTEMETHER\LUMEFANTRINE
     Dosage: 4 DOSAGE FORM, QD (TAG 2/3:  JE 2X 80/480 MG (4 TAB))
     Route: 048
     Dates: end: 20241001

REACTIONS (3)
  - Haemolysis [Recovering/Resolving]
  - Hepatic function abnormal [Recovering/Resolving]
  - Thrombocytopenia [Recovering/Resolving]

NARRATIVE: CASE EVENT DATE: 20241016
